FAERS Safety Report 21840496 (Version 1)
Quarter: 2023Q1

REPORT INFORMATION
  Report Type: Report from Study
  Country: US (occurrence: US)
  Receive Date: 20230110
  Receipt Date: 20230110
  Transmission Date: 20230418
  Serious: Yes (Other)
  Sender: FDA-Public Use
  Company Number: US-ABBVIE-4261484

PATIENT
  Sex: Female

DRUGS (1)
  1. IMBRUVICA [Suspect]
     Active Substance: IBRUTINIB
     Indication: Product used for unknown indication
     Route: 048
     Dates: start: 20221106

REACTIONS (5)
  - Recurrent cancer [Not Recovered/Not Resolved]
  - Drug resistance [Unknown]
  - Tooth resorption [Unknown]
  - Vomiting [Unknown]
  - Dental caries [Unknown]
